FAERS Safety Report 10754772 (Version 3)
Quarter: 2015Q2

REPORT INFORMATION
  Report Type: Spontaneous
  Country: US (occurrence: US)
  Receive Date: 20150202
  Receipt Date: 20150416
  Transmission Date: 20150821
  Serious: No
  Sender: FDA-Public Use
  Company Number: US-PFIZER INC-2015043059

PATIENT
  Age: 56 Year
  Sex: Female
  Weight: 78 kg

DRUGS (7)
  1. LYRICA [Suspect]
     Active Substance: PREGABALIN
     Dosage: 150 MG, 2X/DAY
  2. OMEPRAZOLE. [Concomitant]
     Active Substance: OMEPRAZOLE
     Indication: OESOPHAGEAL SPASM
     Dosage: 20 MG, 1X/DAY
     Dates: start: 2005
  3. ESTRADIOL. [Concomitant]
     Active Substance: ESTRADIOL
     Indication: BLADDER PROLAPSE
     Dosage: 2 MG, 1X/DAY
     Dates: start: 2011
  4. LYRICA [Suspect]
     Active Substance: PREGABALIN
     Dosage: 150 MG, 2X/DAY
     Dates: start: 201411, end: 20150306
  5. OMEPRAZOLE. [Concomitant]
     Active Substance: OMEPRAZOLE
     Indication: GASTROOESOPHAGEAL REFLUX DISEASE
  6. LYRICA [Suspect]
     Active Substance: PREGABALIN
     Indication: NEUROPATHY PERIPHERAL
     Dosage: UNK UNK, 2X/DAY
     Dates: start: 201412
  7. LYRICA [Suspect]
     Active Substance: PREGABALIN
     Dosage: 125 MG, DAILY (75MG AND 50MG)

REACTIONS (4)
  - Impaired work ability [Recovered/Resolved]
  - Peripheral swelling [Recovered/Resolved]
  - Somnolence [Recovered/Resolved]
  - Weight increased [Recovered/Resolved]

NARRATIVE: CASE EVENT DATE: 201411
